FAERS Safety Report 4570050-3 (Version None)
Quarter: 2005Q1

REPORT INFORMATION
  Report Type: 
  Country: None (occurrence: None)
  Receive Date: 20050131
  Receipt Date: 20050119
  Transmission Date: 20050727
  Serious: Yes (Disabling)
  Sender: FDA-Public Use
  Company Number: 05H-163-0287546-00

PATIENT
  Age: 50 Year
  Sex: Male
  Weight: 94 kg

DRUGS (7)
  1. NOREPINEPHRINE INJECTION (NOREPINEPHRINE BITARTRATE INJECTION) (NOREPI [Suspect]
     Indication: SHOCK
     Dosage: 0.26 UG/KG/MIN, INFUSION
  2. DOBUTAMINE INJECTION (DOBUTAMINE HYDROCHLORIDE INJECTION) (DOBUTAMINE [Suspect]
     Indication: SHOCK
     Dosage: 2.5-5 UG/KG/MIN
  3. DOPAMINE HCL [Suspect]
     Indication: SHOCK
     Dosage: { 6 UG/KG/MIN
  4. VASOPRESSIN INJECTION [Suspect]
     Indication: SHOCK
     Dosage: 0.09 U/MIN,
  5. RINGER'S [Concomitant]
  6. BLOOD PRODUCTS [Concomitant]
  7. IV FLUIDS [Concomitant]

REACTIONS (6)
  - BLINDNESS [None]
  - FACIAL BONES FRACTURE [None]
  - INJURY [None]
  - OPTIC ISCHAEMIC NEUROPATHY [None]
  - OPTIC NEUROPATHY [None]
  - PUPILLARY REFLEX IMPAIRED [None]
